FAERS Safety Report 21827272 (Version 1)
Quarter: 2023Q1

REPORT INFORMATION
  Report Type: Spontaneous
  Country: US (occurrence: US)
  Receive Date: 20230106
  Receipt Date: 20230106
  Transmission Date: 20230418
  Serious: No
  Sender: FDA-Public Use
  Company Number: US-COOPERSURGICAL, INC.-US-2022CPS000779

PATIENT
  Age: 39 Year
  Sex: Female
  Weight: 112.47 kg

DRUGS (2)
  1. PARAGARD T 380A [Suspect]
     Active Substance: COPPER
     Indication: Contraception
     Dosage: UNK
     Route: 015
     Dates: start: 20220217, end: 2022
  2. PARAGARD T 380A [Suspect]
     Active Substance: COPPER
     Dosage: UNK
     Route: 015
     Dates: start: 2022

REACTIONS (6)
  - Procedural pain [Recovered/Resolved]
  - Hyperhidrosis [Recovered/Resolved]
  - Device dislocation [Recovered/Resolved]
  - Pain [Recovered/Resolved]
  - Device expulsion [Recovered/Resolved]
  - Off label use [Recovered/Resolved]

NARRATIVE: CASE EVENT DATE: 20220217
